FAERS Safety Report 21597574 (Version 1)
Quarter: 2022Q4

REPORT INFORMATION
  Report Type: Spontaneous
  Country: None (occurrence: US)
  Receive Date: 20221115
  Receipt Date: 20221115
  Transmission Date: 20230112
  Serious: No
  Sender: FDA-Public Use
  Company Number: US-AMNEAL PHARMACEUTICALS-2022-AMRX-02559

PATIENT
  Age: 31 Year
  Sex: Male
  Weight: 68 kg

DRUGS (4)
  1. ISOTRETINOIN [Suspect]
     Active Substance: ISOTRETINOIN
     Indication: Acne
     Dosage: 40 MG , 1 CAPSULE BID
     Route: 048
     Dates: start: 20220223, end: 20220725
  2. OCREVUS [Concomitant]
     Active Substance: OCRELIZUMAB
     Dosage: 600 MILLIGRAM/ 2 TIMES PER YEAR
     Route: 048
     Dates: start: 20210915
  3. CRESTOR [Concomitant]
     Active Substance: ROSUVASTATIN CALCIUM
     Dosage: 20 MILLIGRAM, QD
     Route: 048
     Dates: start: 20210915
  4. WELLBUTRIN [Concomitant]
     Active Substance: BUPROPION HYDROCHLORIDE
     Dosage: 300 MILLIGRAM, QD
     Route: 048

REACTIONS (2)
  - Mood altered [Unknown]
  - Mood swings [Unknown]

NARRATIVE: CASE EVENT DATE: 20220601
